FAERS Safety Report 9638073 (Version 4)
Quarter: 2014Q2

REPORT INFORMATION
  Report Type: Spontaneous
  Country: US (occurrence: US)
  Receive Date: 20131022
  Receipt Date: 20140404
  Transmission Date: 20141212
  Serious: No
  Sender: FDA-Public Use
  Company Number: US-PFIZER INC-2013297357

PATIENT
  Age: 63 Year
  Sex: Female

DRUGS (4)
  1. SUTENT [Suspect]
     Indication: RENAL CANCER
     Dosage: 50 MG, DAILY
     Route: 048
     Dates: start: 20130710, end: 20131015
  2. SUTENT [Suspect]
     Dosage: 12.5 MG 3 CAPSULE DAILY
     Dates: start: 20131015
  3. SUTENT [Suspect]
     Dosage: 37.5 MG, DAILY
     Route: 048
     Dates: start: 20131017
  4. SUTENT [Suspect]
     Dosage: UNK
     Dates: end: 20140314

REACTIONS (1)
  - Pain in extremity [Unknown]
